FAERS Safety Report 18670049 (Version 1)
Quarter: 2020Q4

REPORT INFORMATION
  Report Type: Spontaneous
  Country: US (occurrence: US)
  Receive Date: 20201228
  Receipt Date: 20201228
  Transmission Date: 20210114
  Serious: Yes (Hospitalization)
  Sender: FDA-Public Use
  Company Number: None

PATIENT
  Age: 78 Year
  Sex: Male
  Weight: 73.5 kg

DRUGS (2)
  1. CASIRIVIMAB/IMDEVIMAB [Suspect]
     Active Substance: CASIRIVIMAB\IMDEVIMAB
     Indication: COVID-19
     Dosage: ?          OTHER FREQUENCY:ONCE;?
     Route: 041
  2. 0.9% SODIUM CHLORIDE IV FLUID [Concomitant]
     Dates: start: 20201224, end: 20201224

REACTIONS (2)
  - Atrial fibrillation [None]
  - Infusion related reaction [None]

NARRATIVE: CASE EVENT DATE: 20201224
